FAERS Safety Report 8540144-6 (Version None)
Quarter: 2012Q3

REPORT INFORMATION
  Report Type: 
  Country: None (occurrence: None)
  Receive Date: 20120726
  Receipt Date: 20120718
  Transmission Date: 20120928
  Serious: Yes (Hospitalization, Other)
  Sender: FDA-Public Use
  Company Number: BR-ASTRAZENECA-2012SE51272

PATIENT
  Age: 78 Year
  Sex: Male
  Weight: 64 kg

DRUGS (1)
  1. ATACAND [Suspect]
     Indication: HYPERTENSION
     Dosage: DAILY
     Route: 048
     Dates: start: 20110101, end: 20111001

REACTIONS (5)
  - GASTROINTESTINAL DISORDER [None]
  - BLOOD PRESSURE INCREASED [None]
  - ARRHYTHMIA [None]
  - LUNG NEOPLASM MALIGNANT [None]
  - DRUG INEFFECTIVE [None]
